FAERS Safety Report 6370781-9 (Version None)
Quarter: 2009Q3

REPORT INFORMATION
  Report Type: 
  Country: None (occurrence: None)
  Receive Date: 20090923
  Receipt Date: 20070801
  Transmission Date: 20100115
  Serious: No
  Sender: FDA-Public Use
  Company Number: US-ASTRAZENECA-2006UW23913

PATIENT
  Age: 10817 Day
  Sex: Female
  Weight: 142.9 kg

DRUGS (4)
  1. SEROQUEL [Suspect]
     Indication: SCHIZOPHRENIA
     Dosage: 200 MG-400 MG
     Route: 048
     Dates: start: 20040406
  2. SEROQUEL [Suspect]
     Indication: BIPOLAR DISORDER
     Dosage: 200 MG-400 MG
     Route: 048
     Dates: start: 20040406
  3. SEROQUEL [Suspect]
     Indication: DEPRESSION
     Dosage: 200 MG-400 MG
     Route: 048
     Dates: start: 20040406
  4. LEXAPRO [Concomitant]
     Dosage: 10-20 MG EVERYDAY
     Dates: start: 20030601

REACTIONS (3)
  - DIABETES MELLITUS [None]
  - POLYURIA [None]
  - URINARY TRACT INFECTION [None]
